FAERS Safety Report 14867690 (Version 4)
Quarter: 2024Q1

REPORT INFORMATION
  Report Type: Spontaneous
  Country: ES (occurrence: ES)
  Receive Date: 20180508
  Receipt Date: 20240214
  Transmission Date: 20240410
  Serious: Yes (Other)
  Sender: FDA-Public Use
  Company Number: ES-AUROBINDO-AUR-APL-2018-024381

PATIENT
  Age: 62 Year
  Sex: Male

DRUGS (4)
  1. QUETIAPINE [Interacting]
     Active Substance: QUETIAPINE
     Indication: Schizophrenia
     Dosage: 1200 MILLIGRAM, 1-1-1-0
     Route: 065
  2. QUETIAPINE [Interacting]
     Active Substance: QUETIAPINE
     Indication: Depression
     Dosage: 400MILLIGRAM
     Route: 065
  3. FLUTICASONE PROPIONATE\SALMETEROL XINAFOATE [Interacting]
     Active Substance: FLUTICASONE PROPIONATE\SALMETEROL XINAFOATE
     Indication: Asthma
     Dosage: 1 DOSAGE FORM, 1-0-1-0 2 INHALACIONES
     Route: 048
  4. HALOPERIDOL [Interacting]
     Active Substance: HALOPERIDOL
     Indication: Psychotic disorder
     Dosage: 15 MILLIGRAM, 1-1-1-0
     Route: 065

REACTIONS (5)
  - Hypothyroidism [Unknown]
  - Pruritus [Unknown]
  - Type 2 diabetes mellitus [Unknown]
  - Prescribed overdose [Unknown]
  - Drug interaction [Unknown]
